FAERS Safety Report 4378725-6 (Version None)
Quarter: 2004Q2

REPORT INFORMATION
  Report Type: 
  Country: None (occurrence: None)
  Receive Date: 20040616
  Receipt Date: 20040426
  Transmission Date: 20050107
  Serious: Yes (Other)
  Sender: FDA-Public Use
  Company Number: PHEH2004US04619

PATIENT
  Age: 63 Year
  Sex: Female
  Weight: 150 kg

DRUGS (9)
  1. LESCOL XL [Suspect]
     Indication: HYPERCHOLESTEROLAEMIA
     Dosage: 80 MG, QD
     Dates: start: 20031001
  2. ARIMIDEX [Concomitant]
     Dates: start: 20000101
  3. AREDIA [Concomitant]
     Dosage: UNK, UNK
     Dates: start: 20000101
  4. ATIVAN [Concomitant]
  5. PROZAC [Concomitant]
  6. PREVACID [Concomitant]
     Indication: GASTROOESOPHAGEAL REFLUX DISEASE
  7. LOPID [Concomitant]
  8. PRILOSEC [Concomitant]
  9. VERAPAMIL [Concomitant]

REACTIONS (3)
  - AMNESIA [None]
  - PANIC ATTACK [None]
  - VERTIGO [None]
